FAERS Safety Report 8234116-9 (Version None)
Quarter: 2012Q1

REPORT INFORMATION
  Report Type: 
  Country: None (occurrence: None)
  Receive Date: 20120326
  Receipt Date: 20120326
  Transmission Date: 20120608
  Serious: Yes (Hospitalization, Other)
  Sender: FDA-Public Use
  Company Number: None

PATIENT
  Sex: Male
  Weight: 76.203 kg

DRUGS (1)
  1. CIPROFLOXACIN HCL [Suspect]
     Indication: URINARY TRACT INFECTION
     Dosage: 1 TAB
     Route: 048
     Dates: start: 20111130, end: 20111212

REACTIONS (9)
  - CONVULSION [None]
  - INSOMNIA [None]
  - MANIA [None]
  - DEPRESSED LEVEL OF CONSCIOUSNESS [None]
  - HALLUCINATION [None]
  - HEART RATE IRREGULAR [None]
  - TACHYPHRENIA [None]
  - DISTURBANCE IN ATTENTION [None]
  - PSYCHOTIC BEHAVIOUR [None]
